FAERS Safety Report 23044328 (Version 2)
Quarter: 2023Q4

REPORT INFORMATION
  Report Type: Spontaneous
  Country: US (occurrence: US)
  Receive Date: 20231009
  Receipt Date: 20231020
  Transmission Date: 20240110
  Serious: No
  Sender: FDA-Public Use
  Company Number: US-ELI_LILLY_AND_COMPANY-US202310001844

PATIENT
  Sex: Female

DRUGS (8)
  1. MOUNJARO [Suspect]
     Active Substance: TIRZEPATIDE
     Indication: Glucose tolerance impaired
     Dosage: 2.5 MG, UNKNOWN
     Route: 058
     Dates: start: 202306
  2. MOUNJARO [Suspect]
     Active Substance: TIRZEPATIDE
     Indication: Weight decreased
  3. MOUNJARO [Suspect]
     Active Substance: TIRZEPATIDE
     Indication: Glucose tolerance impaired
     Dosage: 5 MG, UNKNOWN
     Route: 058
  4. MOUNJARO [Suspect]
     Active Substance: TIRZEPATIDE
     Indication: Weight decreased
  5. MOUNJARO [Suspect]
     Active Substance: TIRZEPATIDE
     Indication: Glucose tolerance impaired
     Dosage: 7.5 MG, UNKNOWN
     Route: 065
  6. MOUNJARO [Suspect]
     Active Substance: TIRZEPATIDE
     Indication: Blood glucose
  7. MOUNJARO [Suspect]
     Active Substance: TIRZEPATIDE
     Indication: Weight decreased
  8. BENADRYL [Concomitant]
     Active Substance: DIPHENHYDRAMINE HYDROCHLORIDE
     Indication: Pruritus

REACTIONS (8)
  - Incorrect dose administered [Unknown]
  - Rash [Unknown]
  - Sleep disorder due to general medical condition, insomnia type [Unknown]
  - Off label use [Unknown]
  - Injection site pruritus [Unknown]
  - Injection site urticaria [Unknown]
  - Injection site erythema [Unknown]
  - Injection site bruising [Unknown]
